FAERS Safety Report 8838023 (Version 5)
Quarter: 2012Q4

REPORT INFORMATION
  Report Type: Report from Study
  Country: CA (occurrence: CA)
  Receive Date: 20121012
  Receipt Date: 20121227
  Transmission Date: 20130627
  Serious: Yes (Death, Hospitalization, Other)
  Sender: FDA-Public Use
  Company Number: CA-ROCHE-1143626

PATIENT
  Age: 79 None
  Sex: Female
  Weight: 70 kg

DRUGS (14)
  1. TOCILIZUMAB [Suspect]
     Indication: RHEUMATOID ARTHRITIS
     Route: 042
     Dates: start: 20120210, end: 20121115
  2. TOCILIZUMAB [Suspect]
     Route: 042
     Dates: start: 20120706
  3. AVALIDE [Concomitant]
     Indication: BLOOD PRESSURE
  4. NORVASC [Concomitant]
     Indication: BLOOD PRESSURE
  5. NEXIUM [Concomitant]
  6. PERCOCET [Concomitant]
  7. LIPITOR [Concomitant]
  8. PREMARIN [Concomitant]
  9. DIDROCAL (CALCIUM CARBONATE) [Concomitant]
  10. FOLIC ACID [Concomitant]
  11. VITAMIN D [Concomitant]
  12. FLU SHOT [Concomitant]
     Route: 065
     Dates: start: 20121003, end: 20121003
  13. PREDNISONE [Concomitant]
  14. METFORMIN [Concomitant]
     Route: 065
     Dates: start: 201206

REACTIONS (5)
  - Type 1 diabetes mellitus [Not Recovered/Not Resolved]
  - Clostridium difficile infection [Recovered/Resolved]
  - Vomiting [Recovering/Resolving]
  - Malaise [Not Recovered/Not Resolved]
  - Death [Fatal]
